FAERS Safety Report 16172439 (Version 1)
Quarter: 2019Q2

REPORT INFORMATION
  Report Type: Spontaneous
  Country: US (occurrence: US)
  Receive Date: 20190409
  Receipt Date: 20190409
  Transmission Date: 20190711
  Serious: Yes (Other)
  Sender: FDA-Public Use
  Company Number: US-AUROBINDO-AUR-APL-2019-018529

PATIENT

DRUGS (2)
  1. DEXAMETHASONE. [Suspect]
     Active Substance: DEXAMETHASONE
     Indication: RESPIRATORY DISTRESS
     Dosage: 10 MILLIGRAM
     Route: 042
  2. IPRATROPIUM BROMIDE;SALBUTAMOL [Concomitant]
     Indication: RESPIRATORY DISTRESS
     Dosage: UNK, NEBULIZED
     Route: 045

REACTIONS (2)
  - Tachycardia [Recovered/Resolved]
  - Genital burning sensation [Unknown]
